FAERS Safety Report 21289692 (Version 1)
Quarter: 2022Q3

REPORT INFORMATION
  Report Type: Spontaneous
  Country: US (occurrence: US)
  Receive Date: 20220902
  Receipt Date: 20220902
  Transmission Date: 20221027
  Serious: Yes (Other)
  Sender: FDA-Public Use
  Company Number: US-AMGEN-USASP2022143163

PATIENT
  Age: 66 Year
  Sex: Male

DRUGS (8)
  1. BEVACIZUMAB [Suspect]
     Active Substance: BEVACIZUMAB
     Indication: Glaucoma
     Dosage: 1.25 MILLIGRAM (0.05 ML)
  2. BEVACIZUMAB [Suspect]
     Active Substance: BEVACIZUMAB
     Dosage: 1.25 MILLIGRAM (0.05 ML)
  3. BEVACIZUMAB [Suspect]
     Active Substance: BEVACIZUMAB
     Dosage: 1.25 MILLIGRAM (0.05 ML)
  4. TIMOLOL [Concomitant]
     Active Substance: TIMOLOL
     Indication: Ocular ischaemic syndrome
     Dosage: UNK
     Route: 065
  5. DORZOLAMIDE [Concomitant]
     Active Substance: DORZOLAMIDE
     Indication: Ocular ischaemic syndrome
     Dosage: UNK
     Route: 065
  6. BRIMONIDINE [Concomitant]
     Active Substance: BRIMONIDINE TARTRATE
     Indication: Ocular ischaemic syndrome
     Dosage: UNK
     Route: 065
  7. ACETAZOLAMIDE [Concomitant]
     Active Substance: ACETAZOLAMIDE
     Indication: Ocular ischaemic syndrome
     Dosage: 500 MILLIGRAM
     Route: 048
  8. DORZOLAMIDE AND TIMOLOL [Concomitant]
     Active Substance: DORZOLAMIDE HYDROCHLORIDE\TIMOLOL MALEATE
     Indication: Ocular ischaemic syndrome
     Dosage: UNK (TOPICAL)

REACTIONS (3)
  - Anterior segment neovascularisation [Unknown]
  - Drug effective for unapproved indication [Unknown]
  - Off label use [Unknown]
